FAERS Safety Report 9822548 (Version 1)
Quarter: 2014Q1

REPORT INFORMATION
  Report Type: Report from Study
  Country: US (occurrence: US)
  Receive Date: 20140116
  Receipt Date: 20140116
  Transmission Date: 20141002
  Serious: Yes (Other)
  Sender: FDA-Public Use
  Company Number: US-ROCHE-1329828

PATIENT
  Sex: Female

DRUGS (44)
  1. KLONOPIN [Suspect]
     Indication: RHEUMATOID ARTHRITIS
     Dosage: AT BEDTIME
     Route: 065
  2. KLONOPIN [Suspect]
     Indication: SYSTEMIC LUPUS ERYTHEMATOSUS
  3. KLONOPIN [Suspect]
     Indication: SJOGREN^S SYNDROME
  4. KLONOPIN [Suspect]
     Indication: BURSA DISORDER
  5. KLONOPIN [Suspect]
     Indication: FIBROMYALGIA
  6. KLONOPIN [Suspect]
     Indication: OSTEOARTHRITIS
  7. KLONOPIN [Suspect]
     Indication: IMPAIRED GASTRIC EMPTYING
  8. KLONOPIN [Suspect]
     Indication: NEUROPATHY PERIPHERAL
  9. VALIUM [Suspect]
     Indication: RHEUMATOID ARTHRITIS
     Route: 048
  10. VALIUM [Suspect]
     Indication: SYSTEMIC LUPUS ERYTHEMATOSUS
  11. VALIUM [Suspect]
     Indication: SJOGREN^S SYNDROME
  12. VALIUM [Suspect]
     Indication: BURSA DISORDER
  13. VALIUM [Suspect]
     Indication: FIBROMYALGIA
  14. VALIUM [Suspect]
     Indication: OSTEOARTHRITIS
  15. VALIUM [Suspect]
     Indication: IMPAIRED GASTRIC EMPTYING
  16. VALIUM [Suspect]
     Indication: NEUROPATHY PERIPHERAL
  17. RITUXAN [Suspect]
     Indication: SYSTEMIC LUPUS ERYTHEMATOSUS
     Route: 042
     Dates: start: 201204, end: 20131009
  18. RITUXAN [Suspect]
     Indication: RHEUMATOID ARTHRITIS
  19. RITUXAN [Suspect]
     Indication: SJOGREN^S SYNDROME
  20. RITUXAN [Suspect]
     Indication: BURSA DISORDER
  21. RITUXAN [Suspect]
     Indication: FIBROMYALGIA
  22. RITUXAN [Suspect]
     Indication: OSTEOARTHRITIS
  23. RITUXAN [Suspect]
     Indication: IMPAIRED GASTRIC EMPTYING
  24. RITUXAN [Suspect]
     Indication: NEUROPATHY PERIPHERAL
  25. VIMPAT [Concomitant]
     Route: 065
  26. RESTORIL (UNITED STATES) [Concomitant]
     Route: 048
  27. MORPHINE [Concomitant]
     Indication: PAIN
     Route: 048
  28. VITAMIN B12 [Concomitant]
     Route: 065
  29. DEXILANT [Concomitant]
     Route: 048
  30. ZANAFLEX [Concomitant]
     Route: 048
  31. ACETAZOLAMIDE [Concomitant]
     Route: 048
  32. ACETAZOLAMIDE [Concomitant]
     Route: 065
  33. PLAQUENIL [Concomitant]
     Route: 065
  34. SYNTHROID [Concomitant]
     Route: 065
  35. CYTOMEL [Concomitant]
     Route: 065
  36. NUVIGIL [Concomitant]
     Route: 065
  37. ATENOLOL [Concomitant]
     Route: 065
  38. FENTANYL [Concomitant]
     Route: 065
  39. FENTANYL [Concomitant]
     Route: 065
  40. FLECTOR (UNITED STATES) [Concomitant]
     Route: 065
  41. RESTASIS [Concomitant]
     Indication: DRY EYE
  42. PHENERGAN [Concomitant]
  43. IMURAN [Concomitant]
     Route: 065
  44. PROMETHAZINE [Concomitant]
     Route: 065

REACTIONS (96)
  - Haemorrhage [Unknown]
  - Drug ineffective [Unknown]
  - Hypersomnia [Unknown]
  - Muscle spasms [Unknown]
  - Nausea [Unknown]
  - Headache [Unknown]
  - Neck pain [Unknown]
  - Abdominal pain [Unknown]
  - Joint swelling [Unknown]
  - Gait disturbance [Unknown]
  - Musculoskeletal stiffness [Unknown]
  - Joint range of motion decreased [Unknown]
  - Arthralgia [Unknown]
  - Decreased activity [Unknown]
  - Decreased appetite [Unknown]
  - Weight decreased [Unknown]
  - Weight increased [Unknown]
  - Exercise tolerance decreased [Unknown]
  - Coordination abnormal [Unknown]
  - Myositis [Unknown]
  - Paraesthesia [Unknown]
  - Dry eye [Unknown]
  - Asthenia [Unknown]
  - Anti-cyclic citrullinated peptide antibody positive [Unknown]
  - Oropharyngeal pain [Unknown]
  - Vasodilatation [Unknown]
  - Increased tendency to bruise [Unknown]
  - Pyrexia [Unknown]
  - Fatigue [Unknown]
  - Depression [Unknown]
  - Cognitive disorder [Unknown]
  - Memory impairment [Unknown]
  - Convulsion [Unknown]
  - Ataxia [Unknown]
  - Psychiatric symptom [Unknown]
  - Visual impairment [Unknown]
  - Alopecia [Unknown]
  - Butterfly rash [Unknown]
  - Raynaud^s phenomenon [Unknown]
  - Nasal ulcer [Unknown]
  - Dry mouth [Unknown]
  - Mouth ulceration [Unknown]
  - Chest pain [Unknown]
  - Pleuritic pain [Unknown]
  - Dyspnoea [Unknown]
  - Dysphagia [Unknown]
  - Anaemia [Unknown]
  - Muscular weakness [Unknown]
  - Rash [Unknown]
  - Photosensitivity reaction [Unknown]
  - Cough [Unknown]
  - Pericarditis [Unknown]
  - Vomiting [Unknown]
  - Pancreatitis [Unknown]
  - Genital ulceration [Unknown]
  - Vasculitis [Unknown]
  - Haematuria [Unknown]
  - Activities of daily living impaired [Unknown]
  - Speech disorder [Unknown]
  - Sleep disorder [Unknown]
  - Mood swings [Unknown]
  - Nasal dryness [Unknown]
  - Dry mouth [Unknown]
  - Irritable bowel syndrome [Unknown]
  - Epistaxis [Unknown]
  - Autonomic nervous system imbalance [Unknown]
  - Orthostatic hypotension [Unknown]
  - Abdominal distension [Unknown]
  - Cystitis [Unknown]
  - Pollakiuria [Unknown]
  - Vulvovaginal dryness [Unknown]
  - Pruritus [Unknown]
  - Skin ulcer [Unknown]
  - Dyspareunia [Unknown]
  - Mastication disorder [Unknown]
  - Dry skin [Unknown]
  - Dyspepsia [Unknown]
  - Constipation [Unknown]
  - Dysuria [Unknown]
  - Lung disorder [Unknown]
  - Hepatitis [Unknown]
  - Malaise [Unknown]
  - Chills [Unknown]
  - Night sweats [Unknown]
  - Vision blurred [Unknown]
  - Night blindness [Unknown]
  - Sinus headache [Unknown]
  - Cyanosis [Unknown]
  - Heart rate irregular [Unknown]
  - Palpitations [Unknown]
  - Temperature intolerance [Unknown]
  - Anxiety [Unknown]
  - Panic attack [Unknown]
  - Lip dry [Unknown]
  - Skin exfoliation [Unknown]
  - Back pain [Unknown]
